FAERS Safety Report 24364017 (Version 1)
Quarter: 2024Q3

REPORT INFORMATION
  Report Type: Spontaneous
  Country: FR (occurrence: FR)
  Receive Date: 20240925
  Receipt Date: 20240925
  Transmission Date: 20241017
  Serious: Yes (Hospitalization)
  Sender: TEVA
  Company Number: None

PATIENT
  Age: 63 Year
  Sex: Male
  Weight: 110 kg

DRUGS (12)
  1. DOXORUBICIN [Suspect]
     Active Substance: DOXORUBICIN
     Indication: B-cell lymphoma
     Dosage: TIME INTERVAL: TOTAL: DOXORUBICIN HYDROCHLORIDE
     Route: 042
     Dates: start: 20190131, end: 20190131
  2. DOXORUBICIN [Suspect]
     Active Substance: DOXORUBICIN
     Indication: B-cell lymphoma
     Dosage: TIME INTERVAL: TOTAL: DOXORUBICIN HYDROCHLORIDE
     Route: 042
     Dates: start: 20190326, end: 20190326
  3. DOXORUBICIN [Suspect]
     Active Substance: DOXORUBICIN
     Indication: B-cell lymphoma
     Dosage: TIME INTERVAL: TOTAL: DOXORUBICIN HYDROCHLORIDE
     Route: 042
     Dates: start: 20190526, end: 20190526
  4. DOXORUBICIN [Suspect]
     Active Substance: DOXORUBICIN
     Indication: B-cell lymphoma
     Dosage: TIME INTERVAL: TOTAL: DOXORUBICIN HYDROCHLORIDE
     Route: 042
     Dates: start: 20190416, end: 20190416
  5. DOXORUBICIN [Suspect]
     Active Substance: DOXORUBICIN
     Indication: B-cell lymphoma
     Dosage: TIME INTERVAL: TOTAL: DOXORUBICIN HYDROCHLORIDE
     Route: 042
     Dates: start: 20190510, end: 20190510
  6. DOXORUBICIN [Suspect]
     Active Substance: DOXORUBICIN
     Indication: B-cell lymphoma
     Dosage: TIME INTERVAL: TOTAL: DOXORUBICIN HYDROCHLORIDE
     Route: 042
     Dates: start: 20190304, end: 20190304
  7. VINCRISTINE SULFATE [Concomitant]
     Active Substance: VINCRISTINE SULFATE
     Indication: B-cell lymphoma
     Dosage: TIME INTERVAL: CYCLICAL
     Route: 042
     Dates: start: 20190131, end: 20190526
  8. RITUXIMAB [Concomitant]
     Active Substance: RITUXIMAB
     Indication: B-cell lymphoma
     Dosage: TIME INTERVAL: CYCLICAL: MAMMAL/HAMSTER/CHO CELLS
     Route: 042
     Dates: start: 20190131, end: 20190526
  9. CYCLOPHOSPHAMIDE [Concomitant]
     Active Substance: CYCLOPHOSPHAMIDE
     Indication: B-cell lymphoma
     Dosage: TIME INTERVAL: CYCLICAL
     Route: 042
     Dates: start: 20190131, end: 20190526
  10. METHOTREXATE [Concomitant]
     Active Substance: METHOTREXATE
     Indication: B-cell lymphoma
     Dosage: TIME INTERVAL: CYCLICAL
     Route: 037
     Dates: start: 20190326, end: 20190326
  11. METHOTREXATE [Concomitant]
     Active Substance: METHOTREXATE
     Indication: B-cell lymphoma
     Dosage: TIME INTERVAL: CYCLICAL
     Route: 037
     Dates: start: 20190510, end: 20190510
  12. METHOTREXATE [Concomitant]
     Active Substance: METHOTREXATE
     Indication: B-cell lymphoma
     Dosage: TIME INTERVAL: CYCLICAL
     Route: 037
     Dates: start: 20190131, end: 20190131

REACTIONS (1)
  - Dilated cardiomyopathy [Not Recovered/Not Resolved]

NARRATIVE: CASE EVENT DATE: 20240906
